FAERS Safety Report 9227087 (Version 1)
Quarter: 2013Q2

REPORT INFORMATION
  Report Type: Spontaneous
  Country: US (occurrence: US)
  Receive Date: 20130412
  Receipt Date: 20130412
  Transmission Date: 20140414
  Serious: Yes (Hospitalization)
  Sender: FDA-Public Use
  Company Number: US-ELI_LILLY_AND_COMPANY-US201304000881

PATIENT
  Sex: Female

DRUGS (5)
  1. MOBIC [Concomitant]
  2. XANAX [Concomitant]
  3. PRILOSEC [Concomitant]
  4. CYMBALTA [Suspect]
     Indication: DEPRESSION
     Dosage: 30 MG, QD
     Dates: start: 2008
  5. CYMBALTA [Suspect]
     Dosage: 60 MG, QD
     Dates: start: 2012

REACTIONS (6)
  - Pneumonia [Unknown]
  - Bronchitis [Unknown]
  - Formication [Unknown]
  - Nausea [Unknown]
  - Drug withdrawal syndrome [Unknown]
  - Intentional drug misuse [Unknown]
